FAERS Safety Report 10905861 (Version 1)
Quarter: 2015Q1

REPORT INFORMATION
  Report Type: Spontaneous
  Country: CA (occurrence: None)
  Receive Date: 20150220
  Receipt Date: 20150220
  Transmission Date: 20150721
  Serious: Yes (Other)
  Sender: FDA-Public Use
  Company Number: GAM-044-15-CA

PATIENT
  Age: 54 Year
  Sex: Female

DRUGS (1)
  1. OCTAGAM IMMUNE GLOBULIN (HUMAN) [Suspect]
     Active Substance: HUMAN IMMUNOGLOBULIN G
     Indication: CHRONIC INFLAMMATORY DEMYELINATING POLYRADICULONEUROPATHY
     Dosage: 25 G (1X/TOTAL), INTRAVENOUS (NOT OTHERWISE SPECIFIED), BATCH #A406A854, BATCH #A347B854
     Route: 042
     Dates: start: 20141125, end: 20141125

REACTIONS (4)
  - Flushing [None]
  - Gait disturbance [None]
  - Product substitution issue [None]
  - Headache [None]

NARRATIVE: CASE EVENT DATE: 20141125
